FAERS Safety Report 5974995-9 (Version None)
Quarter: 2008Q4

REPORT INFORMATION
  Report Type: 
  Country: None (occurrence: None)
  Receive Date: 20081128
  Receipt Date: 20081103
  Transmission Date: 20090506
  Serious: Yes (Hospitalization, Other)
  Sender: FDA-Public Use
  Company Number: 001#1#2008-00622

PATIENT
  Age: 68 Year
  Sex: Male

DRUGS (6)
  1. NEUPRO [Suspect]
     Indication: PARKINSON'S DISEASE
     Dosage: 8 MG/ 24H (8 MG/ 24H 1 IN 1 DAY (S) )
     Route: 062
     Dates: start: 20070915, end: 20081009
  2. LEVODOPA (LEVODOPA) [Concomitant]
  3. ROPINIROLE HYDROCHLORIDE [Concomitant]
  4. LEVODOPA -BENSERAZIDE-HYDROCHLO (BENSERAZIDE HYDROCHLORIDE, LEVODOPA) [Concomitant]
  5. AMANTADINE-SULFATE (AMANTADINE SULFATE) [Concomitant]
  6. MADOPAR-DEPOT (BENSERAZIDE HYDROCHLORIDE, LEVODOPA) [Concomitant]

REACTIONS (11)
  - BLOOD BILIRUBIN INCREASED [None]
  - BLOOD PRESSURE DIASTOLIC DECREASED [None]
  - CARDIOMEGALY [None]
  - CHOLECYSTITIS CHRONIC [None]
  - CHOLELITHIASIS [None]
  - EMPHYSEMA [None]
  - FLATULENCE [None]
  - HEPATIC ENZYME INCREASED [None]
  - HEPATOMEGALY [None]
  - JAUNDICE CHOLESTATIC [None]
  - PREMATURE AGEING [None]
